FAERS Safety Report 23795241 (Version 2)
Quarter: 2024Q2

REPORT INFORMATION
  Report Type: Spontaneous
  Country: US (occurrence: US)
  Receive Date: 20240429
  Receipt Date: 20240503
  Transmission Date: 20240716
  Serious: Yes (Other)
  Sender: FDA-Public Use
  Company Number: US-BRISTOL-MYERS SQUIBB COMPANY-2024-065581

PATIENT
  Age: 75 Year
  Sex: Female
  Weight: 76.66 kg

DRUGS (2)
  1. ELIQUIS [Suspect]
     Active Substance: APIXABAN
     Indication: Pulmonary embolism
     Dates: start: 20240405
  2. ELIQUIS [Suspect]
     Active Substance: APIXABAN
     Dates: start: 202404

REACTIONS (4)
  - Gastrointestinal disorder [Unknown]
  - Stress [Unknown]
  - Fibromyalgia [Unknown]
  - Rheumatoid arthritis [Unknown]

NARRATIVE: CASE EVENT DATE: 20240401
